FAERS Safety Report 24104559 (Version 1)
Quarter: 2024Q3

REPORT INFORMATION
  Report Type: Spontaneous
  Country: US (occurrence: None)
  Receive Date: 20240717
  Receipt Date: 20240717
  Transmission Date: 20241017
  Serious: Yes (Hospitalization)
  Sender: Public
  Company Number: None

PATIENT
  Sex: Male

DRUGS (1)
  1. NOVOSEVEN RT [Suspect]
     Active Substance: COAGULATION FACTOR VIIA RECOMBINANT HUMAN
     Indication: Platelet disorder
     Dosage: 4MG ONCE DAILY AS NEEDED PRN IV
     Route: 042
     Dates: start: 202404

REACTIONS (2)
  - Mouth haemorrhage [None]
  - Epistaxis [None]
